FAERS Safety Report 13498099 (Version 1)
Quarter: 2017Q2

REPORT INFORMATION
  Report Type: Spontaneous
  Country: FR (occurrence: FR)
  Receive Date: 20170428
  Receipt Date: 20170428
  Transmission Date: 20170830
  Serious: Yes (Life-Threatening)
  Sender: FDA-Public Use
  Company Number: FR-FRESENIUS KABI-FK201703440

PATIENT
  Age: 66 Year
  Sex: Male

DRUGS (4)
  1. ALKERAN [Suspect]
     Active Substance: MELPHALAN
     Indication: B-CELL LYMPHOMA STAGE IV
     Route: 042
     Dates: start: 20161214, end: 20161214
  2. ETOPOPHOS [Suspect]
     Active Substance: ETOPOSIDE PHOSPHATE
     Indication: B-CELL LYMPHOMA STAGE IV
     Route: 042
     Dates: start: 20161210, end: 20161213
  3. BICNU [Suspect]
     Active Substance: CARMUSTINE
     Indication: B-CELL LYMPHOMA STAGE IV
     Route: 042
     Dates: start: 20161209, end: 20161209
  4. CYTARABINE INJECTION [Suspect]
     Active Substance: CYTARABINE
     Indication: B-CELL LYMPHOMA STAGE IV
     Route: 042
     Dates: start: 20161210, end: 20161213

REACTIONS (3)
  - Lung disorder [Recovered/Resolved]
  - Respiratory distress [Recovered/Resolved]
  - Atrial fibrillation [Recovered/Resolved]

NARRATIVE: CASE EVENT DATE: 20161223
